FAERS Safety Report 20422935 (Version 5)
Quarter: 2022Q3

REPORT INFORMATION
  Report Type: Spontaneous
  Country: CA (occurrence: CA)
  Receive Date: 20220203
  Receipt Date: 20220922
  Transmission Date: 20221027
  Serious: Yes (Hospitalization, Other)
  Sender: FDA-Public Use
  Company Number: CA-PFIZER INC-2021079333

PATIENT
  Age: 55 Year
  Sex: Female
  Weight: 70 kg

DRUGS (18)
  1. RUXIENCE [Suspect]
     Active Substance: RITUXIMAB-PVVR
     Indication: Granulomatosis with polyangiitis
     Dosage: 1000 MG, EVERY 2 WEEK, (DAY 0 AND 14)(DAY 1 AND DAY15)
     Route: 042
     Dates: start: 20210121, end: 20210209
  2. RUXIENCE [Suspect]
     Active Substance: RITUXIMAB-PVVR
     Dosage: 1000 MG (DAY 0 AND 14)
     Route: 042
     Dates: start: 20210209
  3. RUXIENCE [Suspect]
     Active Substance: RITUXIMAB-PVVR
     Dosage: 1000 MG (DAY 0 AND 14)
     Route: 042
     Dates: start: 20210809
  4. RUXIENCE [Suspect]
     Active Substance: RITUXIMAB-PVVR
     Dosage: 1000 MG (DAY 0 AND 14)(DAY 1 AND DAY15)
     Route: 042
     Dates: start: 20210809, end: 20210823
  5. RUXIENCE [Suspect]
     Active Substance: RITUXIMAB-PVVR
     Dosage: 1000 MG (DAY 0 AND 14)
     Route: 042
     Dates: start: 20210823
  6. RUXIENCE [Suspect]
     Active Substance: RITUXIMAB-PVVR
     Dosage: 1000 MG (DAY 0 AND 14)(DAY 1 AND DAY 15)
     Route: 042
     Dates: start: 20220323, end: 20220406
  7. RUXIENCE [Suspect]
     Active Substance: RITUXIMAB-PVVR
     Dosage: 1000 MG (DAY 0 AND 14)
     Route: 042
     Dates: start: 20220406
  8. RUXIENCE [Suspect]
     Active Substance: RITUXIMAB-PVVR
     Dosage: 1000MG,(DAY 1 AND DAY 15)
     Route: 042
     Dates: start: 20220829, end: 20220913
  9. RUXIENCE [Suspect]
     Active Substance: RITUXIMAB-PVVR
     Dosage: 1000 MG (DAY 1 AND DAY 15)
     Route: 042
     Dates: start: 20220913
  10. CANDESARTAN [Concomitant]
     Active Substance: CANDESARTAN
     Dosage: 4 MG, 1X/DAY
     Route: 065
  11. HYDROCHLOROTHIAZIDE SAR [Concomitant]
     Dosage: UNK
  12. IMURAN [Concomitant]
     Active Substance: AZATHIOPRINE
     Dosage: 1 DF
  13. IMURAN [Concomitant]
     Active Substance: AZATHIOPRINE
     Dosage: DAILY (75)
  14. IMURAN [Concomitant]
     Active Substance: AZATHIOPRINE
     Dosage: 1 DF
  15. LABETALOL [Concomitant]
     Active Substance: LABETALOL\LABETALOL HYDROCHLORIDE
     Dosage: 200 MG, 1X/DAY
     Route: 042
  16. METHOTREXATE [Concomitant]
     Active Substance: METHOTREXATE
     Dosage: UNK
  17. PROLIA [Concomitant]
     Active Substance: DENOSUMAB
     Dosage: UNK
  18. SULFATRIM [Concomitant]
     Active Substance: SULFAMETHOXAZOLE\TRIMETHOPRIM
     Dosage: UNK

REACTIONS (11)
  - COVID-19 [Unknown]
  - Clostridium difficile infection [Recovered/Resolved]
  - Neovascular age-related macular degeneration [Not Recovered/Not Resolved]
  - Off label use [Unknown]
  - Urticaria [Not Recovered/Not Resolved]
  - Blood pressure fluctuation [Unknown]
  - Weight increased [Unknown]
  - Infection [Unknown]
  - Stomatitis [Not Recovered/Not Resolved]
  - Fatigue [Not Recovered/Not Resolved]
  - Pain [Not Recovered/Not Resolved]

NARRATIVE: CASE EVENT DATE: 20210101
